FAERS Safety Report 16099947 (Version 3)
Quarter: 2022Q1

REPORT INFORMATION
  Report Type: Spontaneous
  Country: GB (occurrence: GB)
  Receive Date: 20190321
  Receipt Date: 20220228
  Transmission Date: 20220423
  Serious: Yes (Hospitalization, Other)
  Sender: FDA-Public Use
  Company Number: None

PATIENT
  Age: 87 Year
  Sex: Female

DRUGS (4)
  1. SPIRONOLACTONE [Suspect]
     Active Substance: SPIRONOLACTONE
     Indication: Cardiac failure chronic
     Route: 048
     Dates: end: 20180929
  2. TRIMETHOPRIM [Suspect]
     Active Substance: TRIMETHOPRIM
     Indication: Urinary tract infection
     Route: 048
  3. RAMIPRIL [Suspect]
     Active Substance: RAMIPRIL
     Indication: Cardiac failure chronic
     Route: 048
  4. FUROSEMIDE [Suspect]
     Active Substance: FUROSEMIDE
     Indication: Cardiac failure chronic
     Route: 048

REACTIONS (1)
  - Hyperkalaemia [Unknown]
